FAERS Safety Report 23470582 (Version 1)
Quarter: 2024Q1

REPORT INFORMATION
  Report Type: Report from Study
  Country: BR (occurrence: BR)
  Receive Date: 20240202
  Receipt Date: 20240202
  Transmission Date: 20240410
  Serious: Yes (Hospitalization)
  Sender: FDA-Public Use
  Company Number: BR-BIOGEN-2024BI01247478

PATIENT
  Sex: Female
  Weight: 72 kg

DRUGS (3)
  1. TYSABRI [Suspect]
     Active Substance: NATALIZUMAB
     Indication: Multiple sclerosis
     Route: 050
     Dates: start: 20210325
  2. PURAN T4 (Levothyroxine) [Concomitant]
     Indication: Hypothyroidism
     Route: 050
  3. VORTIOXETINE [Concomitant]
     Active Substance: VORTIOXETINE
     Indication: Anxiety
     Route: 050

REACTIONS (2)
  - Spinal pain [Not Recovered/Not Resolved]
  - Multiple sclerosis [Recovered/Resolved with Sequelae]

NARRATIVE: CASE EVENT DATE: 20210101
